FAERS Safety Report 7764600-3 (Version None)
Quarter: 2011Q3

REPORT INFORMATION
  Report Type: 
  Country: None (occurrence: None)
  Receive Date: 20110921
  Receipt Date: 20110906
  Transmission Date: 20111222
  Serious: Yes (Hospitalization)
  Sender: FDA-Public Use
  Company Number: PHHY2011BR80580

PATIENT
  Sex: Female

DRUGS (1)
  1. EXFORGE [Suspect]
     Dosage: 160 MG OF VALSARTAN/ 05 MG OF AMLODIPINE

REACTIONS (2)
  - NONSPECIFIC REACTION [None]
  - DRUG HYPERSENSITIVITY [None]
